FAERS Safety Report 10896532 (Version 2)
Quarter: 2015Q2

REPORT INFORMATION
  Report Type: Spontaneous
  Country: TR (occurrence: None)
  Receive Date: 20150302
  Receipt Date: 20150427
  Transmission Date: 20150821
  Serious: Yes (Hospitalization, Other)
  Sender: FDA-Public Use
  Company Number: 2015TR000527

PATIENT
  Sex: Male

DRUGS (2)
  1. ELIGARD [Suspect]
     Active Substance: LEUPROLIDE ACETATE
     Indication: PROSTATE CANCER METASTATIC
  2. BICALUTAMIDE. [Concomitant]
     Active Substance: BICALUTAMIDE

REACTIONS (18)
  - Metastases to bone [None]
  - Urinary incontinence [None]
  - Aspartate aminotransferase increased [None]
  - Decreased appetite [None]
  - Blood glucose increased [None]
  - Blood lactate dehydrogenase increased [None]
  - Blood culture positive [None]
  - Prostatic operation [None]
  - Vomiting [None]
  - Lipids increased [None]
  - Fluid intake reduced [None]
  - Blood alkaline phosphatase increased [None]
  - Bone pain [None]
  - Faecal incontinence [None]
  - Hyperhidrosis [None]
  - Blood creatinine increased [None]
  - Pyrexia [None]
  - Blood urea increased [None]
